FAERS Safety Report 9254942 (Version 2)
Quarter: 2013Q2

REPORT INFORMATION
  Report Type: Spontaneous
  Country: US (occurrence: None)
  Receive Date: 20130418
  Receipt Date: 20130426
  Transmission Date: 20140414
  Serious: Yes (Other)
  Sender: FDA-Public Use
  Company Number: 2013P1004623

PATIENT
  Age: 50 Year
  Sex: Female
  Weight: 72.58 kg

DRUGS (3)
  1. INFUMORPH [Suspect]
     Indication: PAIN
     Route: 037
  2. INFUMORPH [Suspect]
     Indication: POST LAMINECTOMY SYNDROME
     Route: 037
  3. INFUMORPH [Suspect]
     Route: 037

REACTIONS (1)
  - Device kink [None]
